FAERS Safety Report 22374922 (Version 1)
Quarter: 2023Q2

REPORT INFORMATION
  Report Type: Spontaneous
  Country: JP (occurrence: JP)
  Receive Date: 20230527
  Receipt Date: 20230527
  Transmission Date: 20230722
  Serious: Yes (Death, Other)
  Sender: FDA-Public Use
  Company Number: JP-AMGEN-JPNSP2023089290

PATIENT
  Age: 54 Year
  Sex: Male

DRUGS (1)
  1. BLINCYTO [Suspect]
     Active Substance: BLINATUMOMAB
     Indication: B precursor type acute leukaemia
     Dosage: UNK
     Route: 042

REACTIONS (5)
  - Venoocclusive disease [Fatal]
  - B precursor type acute leukaemia [Unknown]
  - Leukaemic infiltration extramedullary [Unknown]
  - Cytokine release syndrome [Unknown]
  - CD19 antigen loss [Unknown]
